FAERS Safety Report 7049258-3 (Version None)
Quarter: 2010Q4

REPORT INFORMATION
  Report Type: 
  Country: None (occurrence: None)
  Receive Date: 20101018
  Receipt Date: 20101006
  Transmission Date: 20110411
  Serious: Yes (Other)
  Sender: FDA-Public Use
  Company Number: US-ROCHE-721340

PATIENT
  Sex: Male
  Weight: 50.3 kg

DRUGS (6)
  1. XELODA [Suspect]
     Route: 048
  2. MEGACE [Concomitant]
     Route: 048
  3. HYDROCODONE [Concomitant]
     Indication: PAIN
     Dosage: DOSE 75/650 MG
     Route: 048
  4. PHENERGAN [Concomitant]
     Indication: NAUSEA
     Dosage: PRN
     Route: 048
  5. ZOFRAN [Concomitant]
     Indication: NAUSEA
     Route: 048
  6. COMPAZINE [Concomitant]
     Indication: NAUSEA
     Route: 048

REACTIONS (2)
  - PHARYNGEAL NEOPLASM [None]
  - SUICIDAL IDEATION [None]
